FAERS Safety Report 4286404-9 (Version None)
Quarter: 2004Q1

REPORT INFORMATION
  Report Type: 
  Country: None (occurrence: None)
  Receive Date: 20040126
  Receipt Date: 20021219
  Transmission Date: 20041129
  Serious: No
  Sender: FDA-Public Use
  Company Number: 02P-163-0206597-00

PATIENT
  Age: 51 Year
  Sex: Male

DRUGS (3)
  1. TERAZOSIN HYDROCHLORIDE [Suspect]
     Dosage: 10 MG, 1 IN 1 D, PER ORAL
     Route: 048
     Dates: start: 20021022, end: 20021022
  2. VARDENAFIL [Suspect]
     Dosage: 20 MG, 1 IN 1 D
     Dates: start: 20021022, end: 20021022
  3. PLACEBO [Suspect]
     Dosage: 1 IN 1 D
     Dates: start: 20021019, end: 20021019

REACTIONS (1)
  - ORTHOSTATIC HYPOTENSION [None]
